FAERS Safety Report 6575043-2 (Version None)
Quarter: 2010Q1

REPORT INFORMATION
  Report Type: 
  Country: None (occurrence: None)
  Receive Date: 20100209
  Receipt Date: 20100127
  Transmission Date: 20100710
  Serious: Yes (Hospitalization)
  Sender: FDA-Public Use
  Company Number: CA-AMGEN-QUU388813

PATIENT
  Sex: Female

DRUGS (7)
  1. ENBREL [Suspect]
     Indication: DRUG USE FOR UNKNOWN INDICATION
     Route: 058
  2. CALCIUM [Concomitant]
  3. DICLOFENAC [Concomitant]
  4. FOLIC ACID [Concomitant]
     Route: 048
  5. METHOTREXATE [Concomitant]
     Route: 048
  6. TYLENOL W/ CODEINE NO. 3 [Concomitant]
  7. VITAMIN D [Concomitant]

REACTIONS (7)
  - ASPIRATION JOINT [None]
  - JOINT SWELLING [None]
  - KNEE OPERATION [None]
  - NEUTROPHIL COUNT INCREASED [None]
  - PYREXIA [None]
  - RED BLOOD CELL SEDIMENTATION RATE INCREASED [None]
  - WHITE BLOOD CELL COUNT INCREASED [None]
